FAERS Safety Report 23233065 (Version 3)
Quarter: 2023Q4

REPORT INFORMATION
  Report Type: Spontaneous
  Country: JP (occurrence: JP)
  Receive Date: 20231128
  Receipt Date: 20231226
  Transmission Date: 20240110
  Serious: Yes (Other)
  Sender: FDA-Public Use
  Company Number: None

PATIENT
  Age: 56 Year
  Sex: Male
  Weight: 58 kg

DRUGS (5)
  1. BOTOX [Suspect]
     Active Substance: ONABOTULINUMTOXINA
     Indication: Muscle spasticity
     Dosage: TIME INTERVAL: AS NECESSARY: DOSE: 450 UNIT
     Route: 030
     Dates: start: 20231102, end: 20231102
  2. RABEPRAZOLE SODIUM [Concomitant]
     Active Substance: RABEPRAZOLE SODIUM
     Indication: Gastritis
     Dosage: 10 MG, QD
     Route: 048
     Dates: start: 20211201
  3. AMLODIPINE BESYLATE [Concomitant]
     Active Substance: AMLODIPINE BESYLATE
     Indication: Hypertension
     Dosage: 5 MG, QD
     Route: 048
     Dates: start: 20211201
  4. PREGABALIN [Concomitant]
     Active Substance: PREGABALIN
     Indication: Pain in extremity
     Dosage: 25 MG, BID
     Route: 048
     Dates: start: 20211220
  5. PREGABALIN [Concomitant]
     Active Substance: PREGABALIN
     Indication: Pain in extremity
     Dosage: 75 MG, BID
     Route: 048
     Dates: start: 20211220

REACTIONS (1)
  - Epilepsy [Recovered/Resolved]

NARRATIVE: CASE EVENT DATE: 20231115
